FAERS Safety Report 4568083-6 (Version None)
Quarter: 2005Q1

REPORT INFORMATION
  Report Type: 
  Country: None (occurrence: None)
  Receive Date: 20050128
  Receipt Date: 20050117
  Transmission Date: 20050727
  Serious: Yes (Other)
  Sender: FDA-Public Use
  Company Number: 2005US000080

PATIENT
  Age: 16 Year
  Sex: Female

DRUGS (5)
  1. PROGRAF [Suspect]
     Indication: PROPHYLAXIS AGAINST TRANSPLANT REJECTION
     Dosage: 12.00 MG, UID/QD
  2. PREDNSIONE (PREDNISONE) [Concomitant]
  3. LEVOTHYROXINE SODIUM [Concomitant]
  4. CYSTEAMINE (MERCAPTAMINE)PER ORAL [Concomitant]
  5. CYSTEAMINE (MERCAPTAMNE) EYE DROP [Concomitant]

REACTIONS (3)
  - INTRACRANIAL PRESSURE INCREASED [None]
  - PAPILLOEDEMA [None]
  - VISUAL FIELD DEFECT [None]
